FAERS Safety Report 5381275-1 (Version None)
Quarter: 2007Q3

REPORT INFORMATION
  Report Type: 
  Country: None (occurrence: None)
  Receive Date: 20070702
  Receipt Date: 20060512
  Transmission Date: 20080115
  Serious: Yes (Hospitalization)
  Sender: FDA-Public Use
  Company Number: SUS1-2006-00411

PATIENT
  Age: 64 Year
  Sex: Female

DRUGS (2)
  1. PENTASA [Suspect]
     Indication: COLITIS ULCERATIVE
     Dosage: 750 MG, 3X/DAY;TID, ORAL
     Route: 048
     Dates: start: 20060217, end: 20060303
  2. FUTHAN(NAFAMOSTATMESILATE) [Suspect]
     Indication: ANTICOAGULANT THERAPY
     Dosage: 70 MG DAILY, INTRAVENOUS
     Route: 042
     Dates: start: 20060220, end: 20060428

REACTIONS (1)
  - PYREXIA [None]
